FAERS Safety Report 19489014 (Version 1)
Quarter: 2021Q3

REPORT INFORMATION
  Report Type: Spontaneous
  Country: IT (occurrence: IT)
  Receive Date: 20210703
  Receipt Date: 20210703
  Transmission Date: 20211014
  Serious: Yes (Other)
  Sender: FDA-Public Use
  Company Number: IT-TEVA-2021-IT-1928005

PATIENT
  Age: 42 Year
  Sex: Male
  Weight: 71 kg

DRUGS (2)
  1. EUTIROX 25 MICROGRAMMI COMPRESSE [Concomitant]
     Active Substance: LEVOTHYROXINE SODIUM
     Dosage: 1 DOSAGE FORMS
     Route: 048
  2. CETIRIZINE [Suspect]
     Active Substance: CETIRIZINE HYDROCHLORIDE
     Indication: SEASONAL ALLERGY
     Dosage: 10 MG
     Route: 048
     Dates: start: 20210602, end: 20210606

REACTIONS (3)
  - Vision blurred [Not Recovered/Not Resolved]
  - Accommodation disorder [Not Recovered/Not Resolved]
  - Oculogyric crisis [Not Recovered/Not Resolved]

NARRATIVE: CASE EVENT DATE: 20210603
